FAERS Safety Report 5140819-5 (Version None)
Quarter: 2006Q4

REPORT INFORMATION
  Report Type: 
  Country: None (occurrence: None)
  Receive Date: 20061026
  Receipt Date: 20061017
  Transmission Date: 20070319
  Serious: Yes (Hospitalization)
  Sender: FDA-Public Use
  Company Number: 2006127499

PATIENT
  Age: 11 Year
  Sex: Female

DRUGS (4)
  1. GENOTROPIN [Suspect]
     Indication: HYPOPITUITARISM
     Dosage: 0.6 MG (DAILY), SUBCUTANEOUS; SEE IMAGE
     Route: 058
     Dates: end: 20060901
  2. GENOTROPIN [Suspect]
     Indication: HYPOPITUITARISM
     Dosage: 0.6 MG (DAILY), SUBCUTANEOUS; SEE IMAGE
     Route: 058
     Dates: start: 20040618
  3. TEGRETOL [Concomitant]
  4. DECAPEPTYL (GONADORELIN) [Concomitant]

REACTIONS (2)
  - NEOPLASM RECURRENCE [None]
  - OPTIC TRACT GLIOMA [None]
